FAERS Safety Report 6970891-9 (Version None)
Quarter: 2010Q3

REPORT INFORMATION
  Report Type: 
  Country: None (occurrence: None)
  Receive Date: 20100908
  Receipt Date: 20100829
  Transmission Date: 20110219
  Serious: Yes (Hospitalization)
  Sender: FDA-Public Use
  Company Number: DE-US-EMD SERONO, INC.-7015828

PATIENT
  Age: 31 Year
  Sex: Female

DRUGS (2)
  1. REBIF [Suspect]
     Indication: MULTIPLE SCLEROSIS
     Dates: end: 20070101
  2. REBIF [Suspect]
     Dates: start: 20090101

REACTIONS (3)
  - EATING DISORDER [None]
  - GASTROINTESTINAL DISORDER [None]
  - RED BLOOD CELL COUNT DECREASED [None]
